FAERS Safety Report 18195550 (Version 29)
Quarter: 2023Q1

REPORT INFORMATION
  Report Type: Report from Study
  Country: US (occurrence: US)
  Receive Date: 20200825
  Receipt Date: 20230125
  Transmission Date: 20230418
  Serious: Yes (Hospitalization, Other)
  Sender: FDA-Public Use
  Company Number: US-NOVARTISPH-NVSC2020US231645

PATIENT
  Age: 33 Year
  Sex: Female
  Weight: 72.121 kg

DRUGS (12)
  1. TREPROSTINIL [Suspect]
     Active Substance: TREPROSTINIL
     Indication: Pulmonary arterial hypertension
     Dosage: (20 NG/KG/MIN), CONT (STRENGTH: 1 MG/ML)
     Route: 042
     Dates: start: 20200817
  2. TREPROSTINIL [Suspect]
     Active Substance: TREPROSTINIL
     Dosage: (26 NG/KG/MIN), CONT (STRENGTH: 1 MG/ML)
     Route: 042
  3. TREPROSTINIL [Suspect]
     Active Substance: TREPROSTINIL
     Dosage: (30 NG/KG/MIN), CONT (STRENGTH: 1 MG/ML)
     Route: 042
  4. TREPROSTINIL [Suspect]
     Active Substance: TREPROSTINIL
     Dosage: (78 NG/KG/MIN) OF 2.5 MG/ML, CONT
     Route: 042
  5. TREPROSTINIL [Suspect]
     Active Substance: TREPROSTINIL
     Dosage: (80 NG/KG/MIN) OF 2.5 MG/ML, CONT
     Route: 042
  6. TREPROSTINIL [Suspect]
     Active Substance: TREPROSTINIL
     Dosage: (80 NG/KG/MIN), CONT
     Route: 042
  7. TREPROSTINIL [Suspect]
     Active Substance: TREPROSTINIL
     Dosage: (78 NG/KG/MIN), CONT
     Route: 042
  8. TREPROSTINIL [Suspect]
     Active Substance: TREPROSTINIL
     Dosage: (60 NG/KG/MIN), CONT
     Route: 042
  9. TREPROSTINIL [Suspect]
     Active Substance: TREPROSTINIL
     Dosage: (60 NG/KG/MIN), CONT
     Route: 042
  10. OPSUMIT [Suspect]
     Active Substance: MACITENTAN
     Indication: Product used for unknown indication
     Dosage: UNK
     Route: 065
  11. SILDENAFIL CITRATE [Concomitant]
     Active Substance: SILDENAFIL CITRATE
     Indication: Product used for unknown indication
     Dosage: 1 DOSAGE FORM, TID (MD WOULD INCREASE TO 2 TABLETS THREE TIMES DAILY, BUT DUE TO SWELLING HAD BEEN A
     Route: 065
  12. ORENITRAM [Concomitant]
     Active Substance: TREPROSTINIL
     Indication: Product used for unknown indication
     Dosage: UNK
     Route: 065

REACTIONS (42)
  - Systemic lupus erythematosus [Unknown]
  - COVID-19 [Unknown]
  - Complication associated with device [Unknown]
  - Dyspnoea exertional [Not Recovered/Not Resolved]
  - Interstitial lung disease [Unknown]
  - Pneumonia [Unknown]
  - Dyspnoea [Unknown]
  - Pseudomonas infection [Unknown]
  - Infectious mononucleosis [Recovering/Resolving]
  - Vascular device infection [Unknown]
  - Pulmonary hypertension [Unknown]
  - Injection site swelling [Unknown]
  - Injection site discharge [Unknown]
  - Procedural haemorrhage [Unknown]
  - Pain [Unknown]
  - Pain in extremity [Unknown]
  - Scratch [Unknown]
  - Flushing [Unknown]
  - Nasal congestion [Unknown]
  - Abdominal discomfort [Unknown]
  - Device occlusion [Unknown]
  - Pain in jaw [Unknown]
  - Arthralgia [Unknown]
  - Swelling [Unknown]
  - Peripheral swelling [Unknown]
  - Fatigue [Unknown]
  - Decreased appetite [Unknown]
  - Vomiting [Unknown]
  - Pruritus [Unknown]
  - Diarrhoea [Unknown]
  - Headache [Recovering/Resolving]
  - Rash [Unknown]
  - Nausea [Unknown]
  - Dizziness [Unknown]
  - Injection site pain [Unknown]
  - Catheter site rash [Unknown]
  - Catheter site pruritus [Unknown]
  - Catheter site erythema [Unknown]
  - Catheter site haemorrhage [Unknown]
  - Infusion site pruritus [Unknown]
  - Infusion site irritation [Unknown]
  - Overdose [Unknown]

NARRATIVE: CASE EVENT DATE: 20211226
